FAERS Safety Report 7668233-9 (Version None)
Quarter: 2011Q3

REPORT INFORMATION
  Report Type: 
  Country: None (occurrence: None)
  Receive Date: 20110808
  Receipt Date: 20110803
  Transmission Date: 20111222
  Serious: Yes (Life-Threatening, Hospitalization, Disabling)
  Sender: FDA-Public Use
  Company Number: DK-JNJFOC-20101202775

PATIENT
  Sex: Female

DRUGS (5)
  1. IMODIUM [Suspect]
     Route: 048
  2. PRIMPERAN TAB [Suspect]
     Indication: NAUSEA
     Route: 048
     Dates: start: 20101006, end: 20101006
  3. IMODIUM [Suspect]
     Indication: DIARRHOEA
     Route: 048
     Dates: start: 20101006, end: 20101006
  4. CIPROFLOXACIN [Suspect]
     Indication: DIARRHOEA
     Route: 048
     Dates: start: 20101006, end: 20101006
  5. TEGRETOL [Suspect]
     Indication: EPILEPSY
     Dosage: SINCE 15 YEARS.
     Route: 048
     Dates: start: 19950101, end: 20101009

REACTIONS (2)
  - PRODUCT QUALITY ISSUE [None]
  - TOXIC EPIDERMAL NECROLYSIS [None]
